FAERS Safety Report 9089701 (Version 3)
Quarter: 2014Q1

REPORT INFORMATION
  Report Type: Report from Study
  Country: US (occurrence: US)
  Receive Date: 20130201
  Receipt Date: 20140306
  Transmission Date: 20141002
  Serious: Yes (Other)
  Sender: FDA-Public Use
  Company Number: US-US-EMD SERONO, INC.-7190015

PATIENT
  Age: 12 Year
  Sex: Male
  Weight: 104 kg

DRUGS (10)
  1. SAIZEN [(SOMATROPIN (RDNA ORIGIN) FOR INJECTION)] [Suspect]
     Indication: GROWTH HORMONE DEFICIENCY
     Dates: start: 20080706, end: 201108
  2. SAIZEN [(SOMATROPIN (RDNA ORIGIN) FOR INJECTION)] [Suspect]
     Indication: HYPOPITUITARISM
     Dates: start: 201302
  3. DESMOPRESSIN [Concomitant]
     Indication: ENURESIS
     Route: 045
  4. DESMOPRESSIN [Concomitant]
     Indication: DIABETES INSIPIDUS
     Dosage: 5 TABLETS IN AM, 10 IN PM
     Route: 048
  5. LEVOTHYROXINE [Concomitant]
     Indication: HYPOTHYROIDISM
  6. HYDROCORTISONE [Concomitant]
     Indication: ADRENAL INSUFFICIENCY
     Route: 048
  7. FERROUS SULFATE [Concomitant]
     Indication: MINERAL SUPPLEMENTATION
     Route: 048
  8. METFORMIN [Concomitant]
     Indication: HYPOTHALAMO-PITUITARY DISORDER
     Dosage: 1500 MG EXTENDED RELEASE DAILY
     Route: 048
  9. CONCERTA [Concomitant]
     Indication: HYPOTHALAMO-PITUITARY DISORDER
     Route: 048
  10. TESTOSTERONE [Concomitant]
     Indication: SECONDARY HYPOGONADISM
     Route: 030
     Dates: start: 201308

REACTIONS (1)
  - Craniopharyngioma [Recovering/Resolving]
